FAERS Safety Report 18023104 (Version 1)
Quarter: 2020Q3

REPORT INFORMATION
  Report Type: Spontaneous
  Country: JP (occurrence: JP)
  Receive Date: 20200714
  Receipt Date: 20200714
  Transmission Date: 20201103
  Serious: Yes (Hospitalization)
  Sender: FDA-Public Use
  Company Number: JP-009507513-2007JPN000613J

PATIENT
  Sex: Male

DRUGS (6)
  1. RESLIN TABLETS 25 [Suspect]
     Active Substance: TRAZODONE HYDROCHLORIDE
     Indication: INSOMNIA
     Dosage: 25 MILLIGRAM, PRN
     Route: 048
     Dates: start: 2019
  2. DIOVAN [Concomitant]
     Active Substance: VALSARTAN
     Dosage: UNK
     Route: 048
  3. CYMBALTA [Concomitant]
     Active Substance: DULOXETINE HYDROCHLORIDE
     Indication: DEPRESSION
     Dosage: THE LARGEST DOSE
     Route: 065
  4. BELSOMRA [Suspect]
     Active Substance: SUVOREXANT
     Indication: INSOMNIA
     Dosage: 20 MILLIGRAM
     Route: 048
  5. BELSOMRA [Suspect]
     Active Substance: SUVOREXANT
     Dosage: UNK UNK, PRN
     Route: 048
  6. AMLODIN [Concomitant]
     Active Substance: AMLODIPINE BESYLATE
     Dosage: UNK
     Route: 048

REACTIONS (11)
  - Irritability [Unknown]
  - Intentional dose omission [Unknown]
  - Insomnia [Unknown]
  - Product use in unapproved indication [Unknown]
  - Dizziness postural [Unknown]
  - Drug ineffective [Unknown]
  - Hyposomnia [Unknown]
  - Periorbital swelling [Unknown]
  - Feeling abnormal [Unknown]
  - Anxiety [Unknown]
  - Contusion [Unknown]

NARRATIVE: CASE EVENT DATE: 2019
